FAERS Safety Report 10098621 (Version 1)
Quarter: 2014Q2

REPORT INFORMATION
  Report Type: Spontaneous
  Country: US (occurrence: None)
  Receive Date: 20140422
  Receipt Date: 20140422
  Transmission Date: 20141212
  Serious: Yes (Other)
  Sender: FDA-Public Use
  Company Number: None

PATIENT
  Age: 66 Year
  Sex: Male
  Weight: 67.59 kg

DRUGS (1)
  1. METFORMIN ER [Suspect]
     Indication: DIABETES MELLITUS
     Route: 048
     Dates: start: 2013, end: 2014

REACTIONS (2)
  - Diabetes mellitus inadequate control [None]
  - Product substitution issue [None]
